FAERS Safety Report 4619737-4 (Version None)
Quarter: 2005Q1

REPORT INFORMATION
  Report Type: 
  Country: None (occurrence: None)
  Receive Date: 20050325
  Receipt Date: 20050117
  Transmission Date: 20050727
  Serious: Yes (Hospitalization)
  Sender: FDA-Public Use
  Company Number: JP-MERCK-0501USA03324

PATIENT
  Age: 77 Year
  Sex: Female

DRUGS (4)
  1. MUCOSTA [Concomitant]
     Indication: GASTROINTESTINAL DISORDER THERAPY
     Route: 048
     Dates: start: 20041213, end: 20041231
  2. MYONAL [Concomitant]
     Indication: HYPOTONIA
     Route: 048
     Dates: start: 20041213, end: 20041231
  3. FOSAMAX [Suspect]
     Indication: OSTEOPOROSIS
     Route: 048
     Dates: start: 20041213, end: 20041231
  4. MOBIC [Concomitant]
     Indication: ANALGESIC THERAPY
     Route: 048
     Dates: start: 20041213, end: 20041231

REACTIONS (2)
  - DUODENAL ULCER HAEMORRHAGE [None]
  - HAEMOGLOBIN DECREASED [None]
